FAERS Safety Report 5276278-1 (Version None)
Quarter: 2007Q1

REPORT INFORMATION
  Report Type: 
  Country: None (occurrence: None)
  Receive Date: 20070326
  Receipt Date: 20070315
  Transmission Date: 20070707
  Serious: Yes (Other)
  Sender: FDA-Public Use
  Company Number: BR-PFIZER INC-2007012266

PATIENT
  Sex: Female
  Weight: 44 kg

DRUGS (1)
  1. DEPO-PROVERA [Suspect]
     Indication: CONTRACEPTION
     Dates: start: 20050728, end: 20050728

REACTIONS (13)
  - ABDOMINAL DISTENSION [None]
  - FATIGUE [None]
  - HALLUCINATION [None]
  - HEADACHE [None]
  - INAPPROPRIATE SCHEDULE OF DRUG ADMINISTRATION [None]
  - INSOMNIA [None]
  - MALAISE [None]
  - METRORRHAGIA [None]
  - NAUSEA [None]
  - NERVOUSNESS [None]
  - PELVIC PAIN [None]
  - URINARY TRACT INFECTION [None]
  - WEIGHT INCREASED [None]
